FAERS Safety Report 23350447 (Version 1)
Quarter: 2023Q4

REPORT INFORMATION
  Report Type: Spontaneous
  Country: US (occurrence: US)
  Receive Date: 20231229
  Receipt Date: 20231229
  Transmission Date: 20240110
  Serious: Yes (Other)
  Sender: FDA-Public Use
  Company Number: US-ViiV Healthcare Limited-US2023178738

PATIENT

DRUGS (8)
  1. DOVATO [Suspect]
     Active Substance: DOLUTEGRAVIR SODIUM\LAMIVUDINE
     Indication: HIV infection
     Dosage: 1 DF, QD (1 TABLET QD X1 MONTH)
     Route: 048
     Dates: start: 20211216
  2. MEPRON [Suspect]
     Active Substance: ATOVAQUONE
     Indication: HIV infection
     Dosage: UNK
  3. ZITHROMAX [Suspect]
     Active Substance: AZITHROMYCIN DIHYDRATE
     Indication: HIV infection
     Dosage: UNK
  4. VALCYTE [Suspect]
     Active Substance: VALGANCICLOVIR HYDROCHLORIDE
     Indication: HIV infection
     Dosage: UNK, BID
  5. BACTRIM [Suspect]
     Active Substance: SULFAMETHOXAZOLE\TRIMETHOPRIM
     Indication: HIV infection
     Dosage: UNK
  6. BIKTARVY [Suspect]
     Active Substance: BICTEGRAVIR SODIUM\EMTRICITABINE\TENOFOVIR ALAFENAMIDE FUMARATE
     Indication: HIV infection
     Dosage: UNK
  7. PREDNISONE [Concomitant]
     Active Substance: PREDNISONE
     Indication: Product used for unknown indication
     Dosage: UNK
  8. COVID-19 vaccine [Concomitant]
     Indication: Product used for unknown indication
     Dosage: UNK

REACTIONS (13)
  - Monkeypox [Unknown]
  - Lymphadenectomy [Unknown]
  - Fistulotomy [Unknown]
  - Rash [Recovered/Resolved]
  - Abdominal distension [Unknown]
  - Helicobacter infection [Unknown]
  - Skin lesion [Unknown]
  - Haemorrhoids [Unknown]
  - Nasopharyngitis [Unknown]
  - Hypertension [Unknown]
  - Herpes zoster [Unknown]
  - Folliculitis [Unknown]
  - Product dose omission issue [Unknown]

NARRATIVE: CASE EVENT DATE: 20211108
